FAERS Safety Report 10893875 (Version 1)
Quarter: 2015Q1

REPORT INFORMATION
  Report Type: Spontaneous
  Country: US (occurrence: US)
  Receive Date: 20150306
  Receipt Date: 20150306
  Transmission Date: 20150721
  Serious: Yes (Other)
  Sender: FDA-Public Use
  Company Number: US-AMGEN-USASP2014043756

PATIENT
  Age: 62 Year
  Sex: Female
  Weight: 124.72 kg

DRUGS (8)
  1. ARAVA [Concomitant]
     Active Substance: LEFLUNOMIDE
     Dosage: 10 MG, UNK
  2. AMINOSYN II [Concomitant]
     Active Substance: ALANINE\ARGININE\ASPARTIC ACID\GLUTAMIC ACID\GLYCINE\HISTIDINE\ISOLEUCINE\LEUCINE\LYSINE ACETATE\METHIONINE\N-ACETYL-TYROSINE\PHENYLALANINE\PROLINE\SERINE\THREONINE\TRYPTOPHAN\VALINE
     Dosage: 10 %, UNK
  3. CLINDAMYCIN [Concomitant]
     Active Substance: CLINDAMYCIN\CLINDAMYCIN PHOSPHATE
     Dosage: 2 %, UNK
  4. FLONASE                            /00908302/ [Concomitant]
     Dosage: 0.05 %, UNK
  5. MAGNESIUM [Concomitant]
     Active Substance: MAGNESIUM
     Dosage: 400 MG, UNK
  6. ENBREL [Suspect]
     Active Substance: ETANERCEPT
     Indication: PRODUCT USED FOR UNKNOWN INDICATION
     Dosage: 50 MG, QWK
     Route: 058
     Dates: start: 2005
  7. LISINOPRIL. [Concomitant]
     Active Substance: LISINOPRIL
     Dosage: 20 MG, UNK
  8. FOLIC ACID. [Concomitant]
     Active Substance: FOLIC ACID
     Dosage: UNK

REACTIONS (2)
  - Furuncle [Unknown]
  - Rheumatoid arthritis [Unknown]
